FAERS Safety Report 4469179-X (Version None)
Quarter: 2004Q4

REPORT INFORMATION
  Report Type: 
  Country: None (occurrence: None)
  Receive Date: 20041005
  Receipt Date: 20040922
  Transmission Date: 20050328
  Serious: Yes (Other)
  Sender: FDA-Public Use
  Company Number: 1781-077

PATIENT

DRUGS (3)
  1. ACETYLCYSTEINE [Suspect]
  2. ... [Suspect]
  3. VISIPAQUE [Concomitant]

REACTIONS (1)
  - NEUROTOXICITY [None]
